FAERS Safety Report 9354806 (Version 1)
Quarter: 2013Q2

REPORT INFORMATION
  Report Type: Spontaneous
  Country: US (occurrence: None)
  Receive Date: 20130618
  Receipt Date: 20130618
  Transmission Date: 20140414
  Serious: No
  Sender: FDA-Public Use
  Company Number: None

PATIENT
  Age: 66 Year
  Sex: Male
  Weight: 70 kg

DRUGS (1)
  1. GAMMAGARD [Suspect]
     Route: 058

REACTIONS (4)
  - Cyst [None]
  - Neoplasm [None]
  - Mass [None]
  - Body fat disorder [None]
